FAERS Safety Report 8927459 (Version 1)
Quarter: 2012Q4

REPORT INFORMATION
  Report Type: 
  Country: US (occurrence: US)
  Receive Date: 20121127
  Receipt Date: 20121127
  Transmission Date: 20130627
  Serious: Yes (Other)
  Sender: FDA-Public Use
  Company Number: US-JNJFOC-20121110320

PATIENT
  Age: 30 Year
  Sex: Male

DRUGS (4)
  1. INVEGA [Suspect]
     Indication: SCHIZOPHRENIA
     Route: 048
  2. RISPERDAL [Suspect]
     Indication: SCHIZOPHRENIA
     Route: 048
  3. COGENTIN [Concomitant]
     Route: 048
  4. PROPRANOLOL [Concomitant]
     Route: 048

REACTIONS (1)
  - Retinitis pigmentosa [Unknown]
